FAERS Safety Report 6899025-6 (Version None)
Quarter: 2010Q3

REPORT INFORMATION
  Report Type: 
  Country: None (occurrence: None)
  Receive Date: 20100802
  Receipt Date: 20071221
  Transmission Date: 20110219
  Serious: No
  Sender: FDA-Public Use
  Company Number: US-PFIZER INC-2007107827

PATIENT
  Sex: Female
  Weight: 105.5 kg

DRUGS (10)
  1. LYRICA [Suspect]
     Indication: NEUROPATHY PERIPHERAL
     Dates: start: 20070824
  2. ULTRAM [Concomitant]
     Dates: start: 20070824
  3. MELOXICAM [Concomitant]
  4. CLONIDINE [Concomitant]
  5. SYNTHROID [Concomitant]
  6. ALTACE [Concomitant]
  7. AVANDAMET [Concomitant]
  8. PROTONIX [Concomitant]
  9. VESICARE [Concomitant]
  10. TOREMIFENE [Concomitant]

REACTIONS (1)
  - PAROSMIA [None]
